FAERS Safety Report 8132875-7 (Version None)
Quarter: 2012Q1

REPORT INFORMATION
  Report Type: 
  Country: None (occurrence: None)
  Receive Date: 20120213
  Receipt Date: 20120206
  Transmission Date: 20120608
  Serious: Yes (Hospitalization)
  Sender: FDA-Public Use
  Company Number: BR-ABBOTT-12P-020-0893995-00

PATIENT
  Sex: Male
  Weight: 97 kg

DRUGS (1)
  1. HUMIRA [Suspect]
     Indication: ANKYLOSING SPONDYLITIS
     Route: 058
     Dates: start: 20120102

REACTIONS (5)
  - INFLUENZA [None]
  - HEADACHE [None]
  - PAIN [None]
  - PYREXIA [None]
  - PHARYNGEAL INFLAMMATION [None]
